FAERS Safety Report 5615606-1 (Version None)
Quarter: 2008Q1

REPORT INFORMATION
  Report Type: 
  Country: None (occurrence: None)
  Receive Date: 20080206
  Receipt Date: 20080128
  Transmission Date: 20080703
  Serious: Yes (Other)
  Sender: FDA-Public Use
  Company Number: A0703927A

PATIENT
  Age: 33 Year
  Sex: Female
  Weight: 65 kg

DRUGS (4)
  1. LAMICTAL [Suspect]
     Indication: EPILEPSY
     Dosage: 700MG PER DAY
     Route: 048
  2. ATIVAN [Concomitant]
     Indication: EPILEPSY
     Dosage: 1MG AS REQUIRED
     Route: 048
  3. FOLIC ACID [Concomitant]
     Indication: PREGNANCY
     Dosage: 4MG PER DAY
     Route: 048
  4. VITAMIN AND MINERAL PRENATAL SUPPLEMENT W/ FOLIC ACID CAP [Concomitant]
     Indication: DRUG USE FOR UNKNOWN INDICATION
     Dosage: 1TAB PER DAY
     Route: 048

REACTIONS (1)
  - ABORTION SPONTANEOUS [None]
